FAERS Safety Report 6853891-9 (Version None)
Quarter: 2010Q3

REPORT INFORMATION
  Report Type: 
  Country: None (occurrence: None)
  Receive Date: 20100717
  Receipt Date: 20071219
  Transmission Date: 20110219
  Serious: No
  Sender: FDA-Public Use
  Company Number: US-PFIZER INC-2007108425

PATIENT
  Sex: Female
  Weight: 50.9 kg

DRUGS (2)
  1. CHANTIX [Suspect]
     Indication: SMOKING CESSATION THERAPY
     Route: 048
     Dates: start: 20061001
  2. WARFARIN SODIUM [Concomitant]
     Indication: HEART VALVE REPLACEMENT

REACTIONS (2)
  - ADVERSE EVENT [None]
  - NASOPHARYNGITIS [None]
